FAERS Safety Report 20678984 (Version 4)
Quarter: 2022Q3

REPORT INFORMATION
  Report Type: Spontaneous
  Country: JP (occurrence: JP)
  Receive Date: 20220406
  Receipt Date: 20220802
  Transmission Date: 20221027
  Serious: Yes (Other)
  Sender: FDA-Public Use
  Company Number: JP-PFIZER INC-202200327654

PATIENT
  Age: 6 Decade
  Sex: Female

DRUGS (2)
  1. VIZIMPRO [Suspect]
     Active Substance: DACOMITINIB
     Dosage: 45 MG, DAILY
     Route: 048
  2. VIZIMPRO [Suspect]
     Active Substance: DACOMITINIB
     Dosage: 30 MG, DAILY
     Route: 048

REACTIONS (6)
  - Skin disorder [Recovered/Resolved]
  - Carcinoembryonic antigen increased [Unknown]
  - Diarrhoea [Recovered/Resolved]
  - Blister [Unknown]
  - Dry skin [Unknown]
  - Neoplasm progression [Unknown]
